FAERS Safety Report 9283401 (Version 1)
Quarter: 2013Q2

REPORT INFORMATION
  Report Type: Spontaneous
  Country: BR (occurrence: None)
  Receive Date: 20130503
  Receipt Date: 20130503
  Transmission Date: 20140414
  Serious: Yes (Other)
  Sender: FDA-Public Use
  Company Number: BR-20130067

PATIENT
  Age: 39 Year
  Sex: Male

DRUGS (1)
  1. DOTAREM [Suspect]
     Indication: NUCLEAR MAGNETIC RESONANCE IMAGING SPINAL
     Route: 042
     Dates: start: 20130111, end: 20130111

REACTIONS (6)
  - Dizziness [None]
  - Dry skin [None]
  - Muscular weakness [None]
  - Muscle twitching [None]
  - Skin plaque [None]
  - Pruritus [None]
